FAERS Safety Report 6087876-X (Version None)
Quarter: 2009Q1

REPORT INFORMATION
  Report Type: 
  Country: None (occurrence: None)
  Receive Date: 20090223
  Receipt Date: 20090218
  Transmission Date: 20090719
  Serious: No
  Sender: FDA-Public Use
  Company Number: US-B.I. PHARMACEUTICALS,INC./RIDGEFIELD-2009-BP-02036BP

PATIENT
  Age: 90 Year
  Sex: Male

DRUGS (2)
  1. FLOMAX [Suspect]
     Dosage: .4MG
     Dates: start: 20090212
  2. CIPROFLOXACIN [Suspect]
     Indication: URINARY TRACT INFECTION
     Dates: start: 20090212

REACTIONS (1)
  - CUTANEOUS VASCULITIS [None]
